FAERS Safety Report 11636590 (Version 1)
Quarter: 2015Q4

REPORT INFORMATION
  Report Type: Spontaneous
  Country: US (occurrence: None)
  Receive Date: 20151015
  Receipt Date: 20151015
  Transmission Date: 20160304
  Serious: No
  Sender: FDA-Public Use
  Company Number: None

PATIENT
  Age: 54 Year
  Sex: Female
  Weight: 70.31 kg

DRUGS (4)
  1. HYDROXYCHLOROQUINE 200MG AVKARE [Suspect]
     Active Substance: HYDROXYCHLOROQUINE
     Indication: AUTOIMMUNE DISORDER
     Route: 048
     Dates: start: 20150729, end: 20150813
  2. CRANBERRY PILL [Concomitant]
  3. BABY ASPRIN [Concomitant]
     Active Substance: ASPIRIN
  4. MELOXICAM (MOBIC), GENERIC [Concomitant]

REACTIONS (5)
  - Dyspnoea [None]
  - Palpitations [None]
  - Middle insomnia [None]
  - Panic attack [None]
  - Product substitution issue [None]

NARRATIVE: CASE EVENT DATE: 20150813
